FAERS Safety Report 8141736-9 (Version None)
Quarter: 2012Q1

REPORT INFORMATION
  Report Type: 
  Country: None (occurrence: None)
  Receive Date: 20120216
  Receipt Date: 20120208
  Transmission Date: 20120608
  Serious: Yes (Other)
  Sender: FDA-Public Use
  Company Number: CA-ABBOTT-12P-028-0902720-00

PATIENT
  Sex: Female

DRUGS (2)
  1. HUMIRA [Suspect]
     Indication: RHEUMATOID ARTHRITIS
     Route: 058
     Dates: start: 20100329, end: 20110930
  2. HUMIRA [Suspect]
     Route: 058
     Dates: start: 20120103

REACTIONS (3)
  - FEMUR FRACTURE [None]
  - MUSCULOSKELETAL DISCOMFORT [None]
  - DYSSTASIA [None]
